FAERS Safety Report 15180527 (Version 1)
Quarter: 2018Q3

REPORT INFORMATION
  Report Type: Spontaneous
  Country: US (occurrence: US)
  Receive Date: 20180623
  Receipt Date: 20180623
  Transmission Date: 20181010
  Serious: No
  Sender: FDA-Public Use
  Company Number: None

PATIENT
  Age: 28 Year
  Sex: Female
  Weight: 79.38 kg

DRUGS (1)
  1. MIRENA [Suspect]
     Active Substance: LEVONORGESTREL
     Dates: start: 20170330

REACTIONS (6)
  - Vision blurred [None]
  - Menorrhagia [None]
  - Dizziness [None]
  - Headache [None]
  - Abdominal pain [None]
  - Migraine [None]
